FAERS Safety Report 8766135 (Version 2)
Quarter: 2013Q4

REPORT INFORMATION
  Report Type: Report from Study
  Country: JP (occurrence: JP)
  Receive Date: 20120904
  Receipt Date: 20131031
  Transmission Date: 20140711
  Serious: Yes (Death, Other)
  Sender: FDA-Public Use
  Company Number: JP-009507513-2012SP012858

PATIENT
  Age: 61 Year
  Sex: Male

DRUGS (29)
  1. BETAMETHASONE SODIUM PHOSPHATE [Suspect]
     Indication: IDIOPATHIC PULMONARY FIBROSIS
     Dosage: 8 MG, QD
     Route: 065
     Dates: start: 20110101, end: 20110125
  2. PIRFENIDONE [Suspect]
     Indication: IDIOPATHIC PULMONARY FIBROSIS
     Dosage: 600 MG, QD
     Route: 065
     Dates: start: 20090610, end: 20090623
  3. PIRFENIDONE [Suspect]
     Dosage: 1200 MG, QD
     Route: 065
     Dates: start: 20090624, end: 20090707
  4. PIRFENIDONE [Suspect]
     Dosage: 1800 MG, QD
     Route: 065
     Dates: start: 20090708, end: 20101230
  5. PIRFENIDONE [Suspect]
     Dosage: 600 MG, QD
     Route: 065
     Dates: start: 20101231, end: 20110124
  6. ENDOXAN [Suspect]
     Indication: IDIOPATHIC PULMONARY FIBROSIS
     Dosage: 890 MG, QD
     Route: 065
     Dates: start: 20110105, end: 20110105
  7. ENDOXAN [Suspect]
     Dosage: 890 MG, QD
     Route: 065
     Dates: start: 20110121, end: 20110121
  8. SANDIMMUN [Suspect]
     Indication: IDIOPATHIC PULMONARY FIBROSIS
     Dosage: 200 MG, QD
     Route: 065
     Dates: start: 20101231, end: 20110124
  9. PREDONINE [Concomitant]
     Indication: IDIOPATHIC PULMONARY FIBROSIS
     Dosage: 12.5 MG, QD
     Route: 048
     Dates: end: 20090609
  10. PREDONINE [Concomitant]
     Indication: IDIOPATHIC PULMONARY FIBROSIS
     Dosage: 20 MG, QD
     Route: 048
     Dates: start: 20090610, end: 20100111
  11. PREDONINE [Concomitant]
     Indication: IDIOPATHIC PULMONARY FIBROSIS
     Dosage: 17.5 MG, QD
     Route: 048
     Dates: start: 20100112, end: 20101228
  12. NEORAL [Concomitant]
     Indication: IDIOPATHIC PULMONARY FIBROSIS
     Dosage: 200 MG, QD
     Route: 048
     Dates: end: 20090609
  13. NEORAL [Concomitant]
     Indication: IDIOPATHIC PULMONARY FIBROSIS
     Dosage: 200 MG, QD
     Route: 048
     Dates: end: 20101231
  14. THEOLONG [Concomitant]
     Indication: IDIOPATHIC PULMONARY FIBROSIS
     Dosage: 200 MG, QD
     Route: 048
     Dates: end: 20101231
  15. DAIPHEN [Concomitant]
     Indication: PROPHYLAXIS
     Dosage: 1 G, QD
     Route: 048
  16. OMEPRAL [Concomitant]
     Indication: PRODUCT USED FOR UNKNOWN INDICATION
     Dosage: 20 MG, QD
     Route: 048
     Dates: end: 20101231
  17. OMEPRAL [Concomitant]
     Indication: PRODUCT USED FOR UNKNOWN INDICATION
     Dosage: 20 MG, QD
     Route: 048
     Dates: start: 20110101, end: 20110125
  18. FOSAMAC [Concomitant]
     Indication: PROPHYLAXIS
     Dosage: FOSAMAC 5 MG
     Route: 048
     Dates: end: 20101231
  19. AMLODIN (AMLODIPINE BESYLATE) [Concomitant]
     Indication: PRODUCT USED FOR UNKNOWN INDICATION
     Dosage: 5 MG, QD
     Route: 048
     Dates: end: 20101231
  20. DIOVAN [Concomitant]
     Indication: PRODUCT USED FOR UNKNOWN INDICATION
     Dosage: 80 MG, QD
     Route: 048
     Dates: end: 20101231
  21. SOL MELCORT [Concomitant]
     Indication: IDIOPATHIC PULMONARY FIBROSIS
     Dosage: 1000 MG, QD
     Route: 048
     Dates: start: 20101229, end: 20101231
  22. ELASPOL [Concomitant]
     Indication: IDIOPATHIC PULMONARY FIBROSIS
     Dosage: 300 MG, QD
     Route: 048
     Dates: start: 20101231, end: 20110112
  23. DORMICUM (MIDAZOLAM) [Concomitant]
     Indication: PRODUCT USED FOR UNKNOWN INDICATION
     Dosage: UNK UNK, UNKNOWN
     Route: 065
     Dates: start: 20101231, end: 20110124
  24. DIPRIVAN [Concomitant]
     Indication: SEDATION
     Dosage: UNK UNK, UNKNOWN
     Route: 065
     Dates: start: 20101231, end: 20110124
  25. FENTANYL [Concomitant]
     Indication: SEDATION
     Dosage: UNK UNK, UNKNOWN
     Route: 065
     Dates: start: 20101231, end: 20110125
  26. DOPAMINE HYDROCHLORIDE [Concomitant]
     Indication: BLOOD PRESSURE DECREASED
     Dosage: INOVAN
     Route: 065
     Dates: start: 20101231, end: 20110124
  27. NOREPINEPHRINE [Concomitant]
     Indication: BLOOD PRESSURE DECREASED
     Dosage: UNK UNK, UNKNOWN
     Route: 065
     Dates: start: 20101231, end: 20110124
  28. BROTIZOLAM [Concomitant]
     Indication: INSOMNIA
     Dosage: 25 MG, QD
     Route: 048
     Dates: start: 20090616, end: 20090713
  29. WARFARIN [Concomitant]
     Indication: ATRIAL FLUTTER
     Dosage: 4 MG, QD
     Route: 048
     Dates: start: 20091205

REACTIONS (5)
  - Bronchopulmonary aspergillosis [Fatal]
  - Atrial flutter [Recovering/Resolving]
  - Blood lactate dehydrogenase increased [Recovered/Resolved]
  - Gamma-glutamyltransferase increased [Recovering/Resolving]
  - Insomnia [Recovered/Resolved]
